FAERS Safety Report 9999189 (Version 2)
Quarter: 2014Q2

REPORT INFORMATION
  Report Type: Report from Study
  Country: GB (occurrence: GB)
  Receive Date: 20140312
  Receipt Date: 20140422
  Transmission Date: 20141212
  Serious: Yes (Other)
  Sender: FDA-Public Use
  Company Number: GB-JNJFOC-20140303889

PATIENT
  Age: 46 Year
  Sex: Female

DRUGS (2)
  1. STELARA [Suspect]
     Indication: PSORIASIS
     Route: 058
     Dates: start: 20130411
  2. SIMVASTATIN [Concomitant]
     Route: 065
     Dates: start: 20110908, end: 20131001

REACTIONS (1)
  - Breast cancer [Not Recovered/Not Resolved]
